FAERS Safety Report 6647567-0 (Version None)
Quarter: 2010Q1

REPORT INFORMATION
  Report Type: 
  Country: None (occurrence: None)
  Receive Date: 20100323
  Receipt Date: 20100323
  Transmission Date: 20100710
  Serious: Yes (Life-Threatening, Hospitalization)
  Sender: FDA-Public Use
  Company Number: None

PATIENT
  Age: 53 Year
  Sex: Male
  Weight: 54.4 kg

DRUGS (1)
  1. TEMSIROLIUMS [Suspect]
     Indication: RENAL CELL CARCINOMA
     Dosage: 25 MG QWEEK IV
     Route: 042
     Dates: start: 20100106, end: 20100304

REACTIONS (6)
  - ANAEMIA [None]
  - EROSIVE DUODENITIS [None]
  - GASTRIC HAEMORRHAGE [None]
  - GASTROINTESTINAL INFLAMMATION [None]
  - HAEMORRHAGE [None]
  - UPPER GASTROINTESTINAL HAEMORRHAGE [None]
